FAERS Safety Report 4511860-8 (Version None)
Quarter: 2004Q4

REPORT INFORMATION
  Report Type: 
  Country: None (occurrence: None)
  Receive Date: 20041123
  Receipt Date: 20041114
  Transmission Date: 20050328
  Serious: Yes (Hospitalization, Other)
  Sender: FDA-Public Use
  Company Number: 2004S1003078

PATIENT
  Age: 70 Year
  Sex: Female
  Weight: 52.6173 kg

DRUGS (18)
  1. APOKYN [Suspect]
     Indication: PARKINSON'S DISEASE
     Dosage: 0.2ML - 0.4ML EVERY 3 HOURS QID PM, SUBCUTANEOUSLY
     Route: 058
     Dates: start: 20040911, end: 20040915
  2. REQUIP [Suspect]
     Indication: PARKINSON'S DISEASE
     Dosage: 5MG QID, ORAL
     Route: 048
     Dates: start: 20040601
  3. CARBIDOPA AND LEVODOPA [Concomitant]
  4. AMANTADINE [Concomitant]
  5. METOPROLOL [Concomitant]
  6. FUROSEMIDE [Concomitant]
  7. POTASSIUM CHLORIDE [Concomitant]
  8. LOSARTAN [Concomitant]
  9. AMIODIPINE [Concomitant]
  10. ALENDRONATE SODIUM [Concomitant]
  11. ZOLPIDEM [Concomitant]
  12. CALCIUM WITH VITAMIN D [Concomitant]
  13. ACETAMINOPHEN/DIPHENHYDRAMINE (PRN) [Concomitant]
  14. VITAMINS WITH IRON [Concomitant]
  15. PANTOPRAZOLE [Concomitant]
  16. REFECOXIB [Concomitant]
  17. AMOXICILLIN [Concomitant]
  18. SEROQUEL [Suspect]
     Dosage: 50MG Q HS, ORAL
     Route: 048
     Dates: start: 20040901

REACTIONS (5)
  - BLOOD PRESSURE ABNORMAL [None]
  - BLOOD PRESSURE DECREASED [None]
  - DRUG INEFFECTIVE [None]
  - GENERAL PHYSICAL HEALTH DETERIORATION [None]
  - MENTAL STATUS CHANGES [None]
